FAERS Safety Report 11740302 (Version 2)
Quarter: 2015Q4

REPORT INFORMATION
  Report Type: Spontaneous
  Country: US (occurrence: US)
  Receive Date: 20151110
  Receipt Date: 20151120
  Transmission Date: 20160304
  Serious: No
  Sender: FDA-Public Use
  Company Number: US-ELI_LILLY_AND_COMPANY-US201109008817

PATIENT
  Age: 90 Year
  Sex: Female

DRUGS (4)
  1. FORTEO [Suspect]
     Active Substance: TERIPARATIDE
     Dosage: 20 UG, QD
  2. FORTEO [Suspect]
     Active Substance: TERIPARATIDE
     Indication: OSTEOPOROSIS
     Dosage: 20 UG, QD
  3. FORTEO [Suspect]
     Active Substance: TERIPARATIDE
     Dosage: 20 UG, QD
  4. FORTEO [Suspect]
     Active Substance: TERIPARATIDE
     Dosage: 20 UG, QD

REACTIONS (9)
  - Back pain [Not Recovered/Not Resolved]
  - Underdose [Unknown]
  - Eating disorder [Unknown]
  - Back pain [Unknown]
  - Dehydration [Unknown]
  - Dysphagia [Unknown]
  - Drug dose omission [Unknown]
  - Compression fracture [Unknown]
  - Nausea [Unknown]

NARRATIVE: CASE EVENT DATE: 20121225
